FAERS Safety Report 5317751-7 (Version None)
Quarter: 2007Q2

REPORT INFORMATION
  Report Type: 
  Country: None (occurrence: None)
  Receive Date: 20070507
  Receipt Date: 20070424
  Transmission Date: 20071010
  Serious: Yes (Other)
  Sender: FDA-Public Use
  Company Number: PHEH2007US04529

PATIENT
  Age: 56 Year
  Sex: Female
  Weight: 93.877 kg

DRUGS (18)
  1. ZELNORM [Suspect]
     Indication: IRRITABLE BOWEL SYNDROME
     Dosage: 6 MG, BID
     Route: 048
     Dates: end: 20070309
  2. NEURONTIN [Concomitant]
     Indication: MIGRAINE
     Dosage: 600 MG 2 TABS, BID
     Route: 048
  3. METOLAZONE [Concomitant]
     Dosage: 2.5 MG, QD
     Route: 048
  4. LEXAPRO [Concomitant]
     Indication: CENTRAL NERVOUS SYSTEM STIMULATION
     Dosage: 20 MG, QD
     Route: 048
  5. NEXIUM [Concomitant]
     Indication: GASTROOESOPHAGEAL REFLUX DISEASE
     Dosage: 20 MG/H, UNK
     Route: 048
  6. ISOSORBIDE [Concomitant]
     Dosage: 15 MG, QD
  7. FOLIC ACID [Concomitant]
     Indication: ANAEMIA VITAMIN B12 DEFICIENCY
     Dosage: 1 MG, Q2MO
  8. ETODOLAC [Concomitant]
     Indication: INTERVERTEBRAL DISC DISORDER
     Dosage: 500 MG, UNK
     Route: 048
  9. ALBUTEROL [Concomitant]
     Indication: DYSPNOEA
  10. SUCRALFATE [Concomitant]
     Indication: GASTROOESOPHAGEAL REFLUX DISEASE
     Dosage: 1 G, QD
  11. LUNESTA [Concomitant]
     Indication: SLEEP APNOEA SYNDROME
     Dosage: 3 MG, QHS
     Route: 048
  12. POTASSIUM ACETATE [Concomitant]
     Dosage: 20 MEQ,  5X DAILY
     Route: 048
  13. TRICOR [Concomitant]
     Indication: BLOOD TRIGLYCERIDES
     Dosage: 145 MG, QD
  14. LISINOPRIL [Concomitant]
     Indication: CARDIAC DISORDER
     Dosage: 5 MG, QD
     Route: 048
  15. SPIRONOLACTONE [Concomitant]
     Indication: CARDIAC DISORDER
     Dosage: 25 MG, QD
     Route: 048
  16. LIPITOR [Concomitant]
     Dosage: 10 MG, QD
     Route: 048
  17. LIDODERM [Concomitant]
     Indication: INTERVERTEBRAL DISC PROTRUSION
  18. COREG [Concomitant]
     Indication: CARDIAC DISORDER
     Dosage: 6.25 MG, QD
     Route: 048

REACTIONS (4)
  - ARRHYTHMIA [None]
  - CARDIAC PACEMAKER INSERTION [None]
  - CHEST PAIN [None]
  - MYOCARDIAL INFARCTION [None]
